FAERS Safety Report 10631498 (Version 1)
Quarter: 2014Q4

REPORT INFORMATION
  Report Type: Spontaneous
  Country: US (occurrence: US)
  Receive Date: 20141205
  Receipt Date: 20141205
  Transmission Date: 20150529
  Serious: No
  Sender: FDA-Public Use
  Company Number: US-BRISTOL-MYERS SQUIBB COMPANY-21501713

PATIENT
  Sex: Female

DRUGS (1)
  1. BYETTA [Suspect]
     Active Substance: EXENATIDE
     Dosage: STARTED 5MCG FOR A MONTH AND THEN 10MCG ABOUT A WEEK TO A WEEK + A HALF AGO.

REACTIONS (2)
  - Injection site pain [Unknown]
  - Underdose [Unknown]
